FAERS Safety Report 11288567 (Version 1)
Quarter: 2015Q3

REPORT INFORMATION
  Report Type: Spontaneous
  Country: US (occurrence: US)
  Receive Date: 20150721
  Receipt Date: 20150721
  Transmission Date: 20151125
  Serious: No
  Sender: FDA-Public Use
  Company Number: US-UNITED THERAPEUTICS-UNT-2015-003534

PATIENT
  Age: 40 Year
  Sex: Male
  Weight: 57.6 kg

DRUGS (3)
  1. LETAIRIS [Concomitant]
     Active Substance: AMBRISENTAN
     Indication: PRODUCT USED FOR UNKNOWN INDICATION
  2. REVATIO [Concomitant]
     Active Substance: SILDENAFIL CITRATE
     Indication: PRODUCT USED FOR UNKNOWN INDICATION
  3. REMODULIN [Suspect]
     Active Substance: TREPROSTINIL
     Indication: PULMONARY HYPERTENSION
     Dosage: 0.0185 ?G/KG/MIN, CONTINUING
     Route: 041
     Dates: start: 20150102

REACTIONS (2)
  - Haemoglobin decreased [Unknown]
  - Lethargy [Unknown]

NARRATIVE: CASE EVENT DATE: 201503
